FAERS Safety Report 9055379 (Version 6)
Quarter: 2025Q2

REPORT INFORMATION
  Report Type: Spontaneous
  Country: US (occurrence: US)
  Receive Date: 20130206
  Receipt Date: 20250428
  Transmission Date: 20250716
  Serious: Yes (Hospitalization, Other)
  Sender: ROCHE
  Company Number: US-ROCHE-1187714

PATIENT
  Age: 74 Year
  Sex: Female

DRUGS (26)
  1. BONIVA [Suspect]
     Active Substance: IBANDRONATE SODIUM
     Indication: Osteoporosis
     Dosage: FILM COATED
     Route: 048
     Dates: start: 2001
  2. BONIVA [Suspect]
     Active Substance: IBANDRONATE SODIUM
     Dosage: FILM COATED
     Route: 048
     Dates: start: 200904, end: 201103
  3. FOSAMAX [Suspect]
     Active Substance: ALENDRONATE SODIUM
     Indication: Osteoporosis
     Route: 048
     Dates: start: 199801, end: 200007
  4. FOSAMAX [Suspect]
     Active Substance: ALENDRONATE SODIUM
     Indication: Osteopenia
     Route: 048
     Dates: start: 2001, end: 2011
  5. ACTONEL [Suspect]
     Active Substance: RISEDRONATE SODIUM
     Indication: Osteopenia
     Route: 048
     Dates: start: 200402, end: 200903
  6. ACTONEL [Suspect]
     Active Substance: RISEDRONATE SODIUM
     Indication: Osteoporosis
  7. MECLIZINE [Concomitant]
     Active Substance: MECLIZINE HYDROCHLORIDE
  8. TEMAZEPAM [Concomitant]
     Active Substance: TEMAZEPAM
  9. TRAMADOL [Concomitant]
     Active Substance: TRAMADOL
  10. AZMACORT [Concomitant]
     Active Substance: TRIAMCINOLONE ACETONIDE
  11. ALBUTEROL [Concomitant]
     Active Substance: ALBUTEROL
  12. CODEINE PHOSPHATE\GUAIFENESIN [Concomitant]
     Active Substance: CODEINE PHOSPHATE\GUAIFENESIN
  13. HYDROCHLOROTHIAZIDE\TRIAMTERENE [Concomitant]
     Active Substance: HYDROCHLOROTHIAZIDE\TRIAMTERENE
  14. AMOXICILLIN [Concomitant]
     Active Substance: AMOXICILLIN
  15. HYDROCODONE BITARTRATE AND ACETAMINOPHEN [Concomitant]
     Active Substance: ACETAMINOPHEN\HYDROCODONE BITARTRATE
  16. AMBIEN [Concomitant]
     Active Substance: ZOLPIDEM TARTRATE
  17. FERROUS SULFATE [Concomitant]
     Active Substance: FERROUS SULFATE
  18. ADVAIR HFA [Concomitant]
     Active Substance: FLUTICASONE PROPIONATE\SALMETEROL XINAFOATE
  19. PANTOPRAZOLE [Concomitant]
     Active Substance: PANTOPRAZOLE
  20. DETROL LA [Concomitant]
     Active Substance: TOLTERODINE TARTRATE
  21. DILTIAZEM [Concomitant]
     Active Substance: DILTIAZEM
  22. ZITHROMAX [Concomitant]
     Active Substance: AZITHROMYCIN DIHYDRATE
  23. BENZONATATE [Concomitant]
     Active Substance: BENZONATATE
  24. METHYLPREDNISOLONE [Concomitant]
     Active Substance: METHYLPREDNISOLONE
  25. LIPITOR [Concomitant]
     Active Substance: ATORVASTATIN CALCIUM
  26. ACETAMINOPHEN AND CODEINE [Concomitant]
     Active Substance: ACETAMINOPHEN\CODEINE PHOSPHATE

REACTIONS (10)
  - Femur fracture [Unknown]
  - Emotional distress [Unknown]
  - Bone disorder [Unknown]
  - Stress fracture [Unknown]
  - Low turnover osteopathy [Unknown]
  - Lymphoproliferative disorder [Unknown]
  - Spinal fracture [Unknown]
  - Rib fracture [Unknown]
  - Comminuted fracture [Unknown]
  - Pain [Unknown]

NARRATIVE: CASE EVENT DATE: 20080101
